FAERS Safety Report 25999159 (Version 1)
Quarter: 2025Q4

REPORT INFORMATION
  Report Type: Spontaneous
  Country: IN (occurrence: IN)
  Receive Date: 20251105
  Receipt Date: 20251105
  Transmission Date: 20260117
  Serious: Yes (Death, Hospitalization, Other)
  Sender: Onesource Specialty Pharma
  Company Number: IN-STRIDES ARCOLAB LIMITED-2025OS001114

PATIENT
  Age: 5 Decade
  Sex: Male

DRUGS (10)
  1. ACETYLCYSTEINE [Suspect]
     Active Substance: ACETYLCYSTEINE
     Indication: Chemical poisoning
     Dosage: 9G IN 50% GLUCOSE [DEXTROSE] OVER ONE HOUR
     Route: 065
  2. ACETYLCYSTEINE [Suspect]
     Active Substance: ACETYLCYSTEINE
     Dosage: FOLLOWED BY 3G IN 500ML GLUCOSE OVER FOUR HOURS
     Route: 065
  3. ACETYLCYSTEINE [Suspect]
     Active Substance: ACETYLCYSTEINE
     Dosage: THEN 6G IN 500ML GLUCOSE OVER THE NEXT FOUR HOURS
     Route: 065
  4. ONDANSETRON [Suspect]
     Active Substance: ONDANSETRON
     Indication: Chemical poisoning
     Dosage: 4 MILLIGRAM, TID
     Route: 065
  5. HYDROCORTISONE [Suspect]
     Active Substance: HYDROCORTISONE
     Indication: Chemical poisoning
     Dosage: 100 MILLIGRAM, Q8H
     Route: 065
  6. RANITIDINE [Suspect]
     Active Substance: RANITIDINE
     Indication: Chemical poisoning
     Dosage: 50 MILLIGRAM, BID
     Route: 065
  7. DEXTROSE [Suspect]
     Active Substance: DEXTROSE MONOHYDRATE
     Indication: Chemical poisoning
     Dosage: ACETYLCYSTEINE IN GLUCOSE OVER ONE HOUR
     Route: 065
  8. DEXTROSE [Suspect]
     Active Substance: DEXTROSE MONOHYDRATE
     Dosage: ACETYLCYSTEINE IN 500ML GLUCOSE OVER FOUR HOURS
     Route: 065
  9. DEXTROSE [Suspect]
     Active Substance: DEXTROSE MONOHYDRATE
     Dosage: ACETYLCYSTEINE IN 500ML GLUCOSE OVER THE NEXT FOUR HOURS
     Route: 065
  10. DEXAMETHASONE [Suspect]
     Active Substance: DEXAMETHASONE
     Indication: Chemical poisoning
     Dosage: 8 MILLIGRAM, TID
     Route: 042

REACTIONS (1)
  - Drug ineffective for unapproved indication [Fatal]
